FAERS Safety Report 9125603 (Version 1)
Quarter: 2013Q1

REPORT INFORMATION
  Report Type: Spontaneous
  Country: IT (occurrence: IT)
  Receive Date: 20130121
  Receipt Date: 20130121
  Transmission Date: 20140127
  Serious: Yes (Other)
  Sender: FDA-Public Use
  Company Number: IT-GLAXOSMITHKLINE-B0860906A

PATIENT
  Age: 70 Year
  Sex: Female

DRUGS (2)
  1. NEOTIGASON [Suspect]
     Indication: PSORIASIS
     Dosage: 20MG PER DAY
     Route: 048
     Dates: start: 20121020, end: 20130102
  2. ATENOLOL + CHLORTHALIDONE [Concomitant]
     Dates: start: 20120101, end: 20130105

REACTIONS (5)
  - Anxiety [Recovered/Resolved]
  - Agitation [Recovered/Resolved]
  - Dyspnoea [Recovered/Resolved]
  - Musculoskeletal pain [Recovered/Resolved]
  - Vision blurred [Recovered/Resolved]
